FAERS Safety Report 19989348 (Version 2)
Quarter: 2021Q4

REPORT INFORMATION
  Report Type: Other
  Country: US (occurrence: US)
  Receive Date: 20211025
  Receipt Date: 20211207
  Transmission Date: 20220303
  Serious: Yes (Other)
  Sender: FDA-Public Use
  Company Number: US-INTERCEPT-PM2021002984

PATIENT
  Sex: Female

DRUGS (2)
  1. OCALIVA [Suspect]
     Active Substance: OBETICHOLIC ACID
     Indication: Primary biliary cholangitis
     Dosage: 5 MILLIGRAM, QD
     Route: 048
     Dates: start: 20180104
  2. OCALIVA [Suspect]
     Active Substance: OBETICHOLIC ACID
     Dosage: 10 MILLIGRAM, QD
     Route: 048
     Dates: end: 2021

REACTIONS (12)
  - Portal hypertension [Not Recovered/Not Resolved]
  - Lower limb fracture [Unknown]
  - Foot operation [Unknown]
  - Multiple fractures [Unknown]
  - Chronic hepatic failure [Not Recovered/Not Resolved]
  - Emergency care [Recovered/Resolved]
  - Depression [Unknown]
  - Fear [Unknown]
  - Crying [Unknown]
  - Insomnia [Unknown]
  - Illness [Unknown]
  - Frustration tolerance decreased [Unknown]

NARRATIVE: CASE EVENT DATE: 20210101
